FAERS Safety Report 6421404-1 (Version None)
Quarter: 2009Q4

REPORT INFORMATION
  Report Type: 
  Country: None (occurrence: None)
  Receive Date: 20091029
  Receipt Date: 20091029
  Transmission Date: 20100525
  Serious: Yes (Disabling)
  Sender: FDA-Public Use
  Company Number: None

PATIENT
  Sex: Male
  Weight: 99.7913 kg

DRUGS (1)
  1. DILANTIN [Suspect]
     Indication: CONVULSION
     Dosage: 100 MG ONCE TID PO 30 MG ONCE QD PO
     Route: 048
     Dates: start: 20080901

REACTIONS (2)
  - CONVULSION [None]
  - PSORIASIS [None]
